FAERS Safety Report 17105788 (Version 1)
Quarter: 2019Q4

REPORT INFORMATION
  Report Type: Spontaneous
  Country: DE (occurrence: DE)
  Receive Date: 20191203
  Receipt Date: 20191203
  Transmission Date: 20200122
  Serious: Yes (Other)
  Sender: FDA-Public Use
  Company Number: DE-PFIZER INC-2019515600

PATIENT
  Age: 84 Year
  Sex: Female
  Weight: 69 kg

DRUGS (3)
  1. TRUSOPT [Concomitant]
     Active Substance: DORZOLAMIDE HYDROCHLORIDE
     Dosage: UNK
     Dates: start: 20191024
  2. XALATAN [Suspect]
     Active Substance: LATANOPROST
     Dosage: BOTH EYES ONCE A DAY
     Dates: start: 20191028
  3. SIMBRINZA [Suspect]
     Active Substance: BRIMONIDINE TARTRATE\BRINZOLAMIDE
     Indication: OCULAR HYPERTENSION
     Dosage: 2 TIMES A DAY ONLY RIGHT EYE
     Route: 047
     Dates: start: 20191024

REACTIONS (3)
  - Eye pain [Not Recovered/Not Resolved]
  - Eye injury [Not Recovered/Not Resolved]
  - Vision blurred [Not Recovered/Not Resolved]

NARRATIVE: CASE EVENT DATE: 20191107
